FAERS Safety Report 5360991-1 (Version None)
Quarter: 2007Q2

REPORT INFORMATION
  Report Type: 
  Country: None (occurrence: None)
  Receive Date: 20070530
  Receipt Date: 20070326
  Transmission Date: 20071010
  Serious: No
  Sender: FDA-Public Use
  Company Number: 2007PV032394

PATIENT
  Age: 64 Year
  Sex: Female
  Weight: 102.9665 kg

DRUGS (5)
  1. BYETTA [Suspect]
     Indication: DIABETES MELLITUS NON-INSULIN-DEPENDENT
     Dosage: 10 MCG BID SC ; 5 MCG BID SC
     Route: 058
     Dates: start: 20070201, end: 20070320
  2. BYETTA [Suspect]
     Indication: DIABETES MELLITUS NON-INSULIN-DEPENDENT
     Dosage: 10 MCG BID SC ; 5 MCG BID SC
     Route: 058
     Dates: start: 20070321
  3. ACTOS [Concomitant]
  4. PRANDIN [Concomitant]
  5. HIGH BLOOD PRESSURE MEDICATIONS [Concomitant]

REACTIONS (10)
  - BLOOD GLUCOSE DECREASED [None]
  - BLOOD GLUCOSE INCREASED [None]
  - DIZZINESS [None]
  - FEELING COLD [None]
  - HYPERTENSION [None]
  - INJECTION SITE BRUISING [None]
  - NAUSEA [None]
  - PERIPHERAL COLDNESS [None]
  - TREMOR [None]
  - WEIGHT DECREASED [None]
